FAERS Safety Report 10495961 (Version 1)
Quarter: 2014Q4

REPORT INFORMATION
  Report Type: Spontaneous
  Country: AT (occurrence: AT)
  Receive Date: 20141003
  Receipt Date: 20141003
  Transmission Date: 20150528
  Serious: Yes (Other)
  Sender: FDA-Public Use
  Company Number: AT-LUNDBECK-DKLU1104077

PATIENT
  Age: 38 Year
  Sex: Male

DRUGS (15)
  1. FRISIUM [Suspect]
     Active Substance: CLOBAZAM
     Indication: PRODUCT USED FOR UNKNOWN INDICATION
     Route: 048
     Dates: start: 20140207, end: 20140211
  2. FRISIUM [Suspect]
     Active Substance: CLOBAZAM
     Route: 048
     Dates: start: 20140212
  3. ZYPREXA [Suspect]
     Active Substance: OLANZAPINE
     Dates: start: 20140213, end: 20140213
  4. LEVETIRACETAM. [Concomitant]
     Active Substance: LEVETIRACETAM
     Indication: PRODUCT USED FOR UNKNOWN INDICATION
  5. SEROXAT [Suspect]
     Active Substance: PAROXETINE HYDROCHLORIDE
     Indication: PRODUCT USED FOR UNKNOWN INDICATION
     Dates: start: 20110318, end: 20140219
  6. ZYPREXA [Suspect]
     Active Substance: OLANZAPINE
     Indication: PRODUCT USED FOR UNKNOWN INDICATION
     Dates: start: 20140206, end: 20140209
  7. ZYPREXA [Suspect]
     Active Substance: OLANZAPINE
     Dates: start: 20140214, end: 20140214
  8. ZYPREXA [Suspect]
     Active Substance: OLANZAPINE
     Dates: start: 20140212, end: 20140212
  9. ZYPREXA [Suspect]
     Active Substance: OLANZAPINE
     Dates: start: 20140215, end: 20140215
  10. ENALAPRIL [Concomitant]
     Active Substance: ENALAPRIL
     Indication: PRODUCT USED FOR UNKNOWN INDICATION
     Dates: start: 2009
  11. MOTRIM [Concomitant]
     Indication: PRODUCT USED FOR UNKNOWN INDICATION
     Dates: start: 20140210, end: 20140214
  12. TOPIRAMATE. [Concomitant]
     Active Substance: TOPIRAMATE
     Indication: PRODUCT USED FOR UNKNOWN INDICATION
  13. ANDROCUR [Concomitant]
     Active Substance: CYPROTERONE ACETATE
     Indication: PRODUCT USED FOR UNKNOWN INDICATION
     Dates: start: 20140211
  14. UNASYN [Concomitant]
     Active Substance: AMPICILLIN SODIUM\SULBACTAM SODIUM
     Indication: PRODUCT USED FOR UNKNOWN INDICATION
     Dates: start: 20140213, end: 20140215
  15. EUTHYROX [Concomitant]
     Active Substance: LEVOTHYROXINE SODIUM
     Indication: PRODUCT USED FOR UNKNOWN INDICATION

REACTIONS (1)
  - Priapism [Recovering/Resolving]

NARRATIVE: CASE EVENT DATE: 20140214
